FAERS Safety Report 8890132 (Version 1)
Quarter: 2012Q4

REPORT INFORMATION
  Report Type: 
  Country: SE (occurrence: SE)
  Receive Date: 20121107
  Receipt Date: 20121107
  Transmission Date: 20130627
  Serious: Yes (Hospitalization)
  Sender: FDA-Public Use
  Company Number: SE-PFIZER INC-2012270855

PATIENT
  Age: 55 Year
  Sex: Male
  Weight: 111.3 kg

DRUGS (7)
  1. GENOTROPIN [Suspect]
     Indication: GROWTH HORMONE DEFICIENCY
     Dosage: 0.3 mg, 1x/day, 7 injections/week
     Route: 058
     Dates: start: 20100615
  2. ATENOLOL [Concomitant]
     Indication: HYPERTENSION
     Dosage: UNK
     Dates: start: 20071228
  3. HYDROCORTISONE [Concomitant]
     Indication: ADRENAL INSUFFICIENCY
     Dosage: UNK
     Dates: start: 20080415
  4. TESTOGEL [Concomitant]
     Indication: HYPOGONADISM
     Dosage: UNK
     Dates: start: 20081003
  5. VOLTAREN [Concomitant]
     Indication: PAIN
     Dosage: UNK
     Dates: start: 20081104
  6. LEVOTHYROXINE [Concomitant]
     Indication: HYPOTHYROIDISM
     Dosage: UNK
     Dates: start: 20090202
  7. ZOPICLON [Concomitant]
     Indication: INSOMNIA
     Dosage: UNK
     Dates: start: 20090505

REACTIONS (1)
  - Diverticulitis [Unknown]
